FAERS Safety Report 9486788 (Version 1)
Quarter: 2013Q3

REPORT INFORMATION
  Report Type: Spontaneous
  Country: US (occurrence: US)
  Receive Date: 20130829
  Receipt Date: 20130829
  Transmission Date: 20140515
  Serious: No
  Sender: FDA-Public Use
  Company Number: US-TEVA-428464USA

PATIENT
  Sex: Female

DRUGS (1)
  1. FENTORA [Suspect]
     Indication: MIGRAINE
     Dosage: 250 MG
     Route: 002

REACTIONS (3)
  - Pain [Unknown]
  - Migraine [Unknown]
  - Off label use [Unknown]
